FAERS Safety Report 10376753 (Version 1)
Quarter: 2014Q1

REPORT INFORMATION
  Report Type: Spontaneous
  Country: US (occurrence: None)
  Receive Date: 20140306
  Receipt Date: 20140306
  Transmission Date: 20141002
  Serious: Yes (Other)
  Sender: FDA-Public Use
  Company Number: 163-21880-13040257

PATIENT
  Age: 44 Year
  Sex: Male

DRUGS (9)
  1. REVLIMID (LENALIDOMIDE) (25 MILLIGRAM, CAPSULES) [Suspect]
     Indication: PLASMA CELL MYELOMA
     Route: 048
     Dates: start: 20100824, end: 2011
  2. VELCADE (BORTEZOMIB) [Concomitant]
  3. DEXAMETHASONE [Concomitant]
  4. COUMADIN (WARFARIN SODIUM) [Concomitant]
  5. ACYCLOVIR (ACICLOVIR) (ACICLOVIR) [Concomitant]
  6. PERCOCET (OXYCOCET) [Concomitant]
  7. LOSARTAN [Concomitant]
  8. ZOCOR (SIMVASTATIN) [Concomitant]
  9. ASPIRIN [Concomitant]

REACTIONS (1)
  - Deep vein thrombosis [None]
